FAERS Safety Report 9472933 (Version 2)
Quarter: 2013Q3

REPORT INFORMATION
  Report Type: Spontaneous
  Country: US (occurrence: US)
  Receive Date: 20130823
  Receipt Date: 20130823
  Transmission Date: 20140515
  Serious: No
  Sender: FDA-Public Use
  Company Number: US-BRISTOL-MYERS SQUIBB COMPANY-17248154

PATIENT
  Age: 61 Year
  Sex: Female

DRUGS (3)
  1. SPRYCEL [Suspect]
     Indication: CHRONIC MYELOID LEUKAEMIA
     Route: 048
  2. LEVAQUIN [Interacting]
  3. AZITHROMYCIN [Interacting]

REACTIONS (4)
  - Upper respiratory tract infection [Unknown]
  - Neuropathy peripheral [Unknown]
  - Hypersensitivity [Not Recovered/Not Resolved]
  - Drug interaction [Unknown]
